FAERS Safety Report 8539728-0 (Version None)
Quarter: 2012Q3

REPORT INFORMATION
  Report Type: 
  Country: None (occurrence: None)
  Receive Date: 20120726
  Receipt Date: 20120206
  Transmission Date: 20120928
  Serious: No
  Sender: FDA-Public Use
  Company Number: US-ASTRAZENECA-2005UW10518

PATIENT
  Age: 53 Year
  Sex: Female

DRUGS (4)
  1. SEROQUEL [Suspect]
     Indication: BIPOLAR II DISORDER
     Route: 048
  2. XANAX [Concomitant]
  3. LAMICTAL [Concomitant]
  4. EFFEXOR XR [Concomitant]

REACTIONS (2)
  - SOMNOLENCE [None]
  - NASOPHARYNGITIS [None]
